FAERS Safety Report 10074300 (Version 1)
Quarter: 2014Q2

REPORT INFORMATION
  Report Type: Spontaneous
  Country: US (occurrence: US)
  Receive Date: 20140411
  Receipt Date: 20140411
  Transmission Date: 20141212
  Serious: No
  Sender: FDA-Public Use
  Company Number: US-SANOFI-AVENTIS-2013SA046008

PATIENT
  Age: 82 Year
  Sex: Female

DRUGS (2)
  1. ALLEGRA D [Suspect]
     Indication: HYPERSENSITIVITY
     Dosage: 60 MG/120 MG
     Route: 048
     Dates: start: 20130430
  2. THYROID [Concomitant]

REACTIONS (3)
  - Blood pressure increased [Not Recovered/Not Resolved]
  - Insomnia [Not Recovered/Not Resolved]
  - Wrong technique in drug usage process [Unknown]
